FAERS Safety Report 8155261-2 (Version None)
Quarter: 2012Q1

REPORT INFORMATION
  Report Type: 
  Country: None (occurrence: None)
  Receive Date: 20120222
  Receipt Date: 20120211
  Transmission Date: 20120608
  Serious: No
  Sender: FDA-Public Use
  Company Number: US-BIOGENIDEC-2012BI005640

PATIENT
  Sex: Female

DRUGS (1)
  1. TYSABRI [Suspect]
     Indication: MULTIPLE SCLEROSIS
     Route: 042
     Dates: start: 20070301, end: 20110428

REACTIONS (8)
  - MUSCULAR WEAKNESS [None]
  - SEASONAL ALLERGY [None]
  - AFFECT LABILITY [None]
  - URINARY INCONTINENCE [None]
  - CONSTIPATION [None]
  - MULTIPLE SCLEROSIS RELAPSE [None]
  - MUSCLE SPASMS [None]
  - ORTHOSIS USER [None]
